FAERS Safety Report 5471160-9 (Version None)
Quarter: 2007Q3

REPORT INFORMATION
  Report Type: 
  Country: None (occurrence: None)
  Receive Date: 20070928
  Receipt Date: 20070918
  Transmission Date: 20080115
  Serious: Yes (Hospitalization, Other)
  Sender: FDA-Public Use
  Company Number: HQWYE485509AUG07

PATIENT
  Sex: Female

DRUGS (11)
  1. PANTOPRAZOLE SODIUM [Suspect]
     Route: 048
     Dates: start: 20060521, end: 20060711
  2. METOPROLOL SUCCINATE [Concomitant]
     Route: 048
     Dates: start: 20060521, end: 20060606
  3. METOPROLOL SUCCINATE [Concomitant]
     Route: 048
     Dates: start: 20060607, end: 20060711
  4. ZOLDEM [Concomitant]
     Indication: SLEEP DISORDER
     Dosage: 10 MG
     Route: 048
     Dates: start: 20060621, end: 20060711
  5. LACTULOSE [Concomitant]
     Route: 048
     Dates: start: 20060621, end: 20060711
  6. FOSAMAX [Concomitant]
     Indication: OSTEOPOROSIS
     Route: 048
     Dates: start: 20060523, end: 20060711
  7. NOVAMINSULFON-RATIOPHARM [Concomitant]
     Route: 048
     Dates: start: 20060607, end: 20060711
  8. MARCUMAR [Concomitant]
     Route: 048
     Dates: start: 20020521, end: 20060520
  9. MARCUMAR [Concomitant]
     Route: 048
     Dates: start: 20060607, end: 20060620
  10. MARCUMAR [Concomitant]
     Dosage: 3 MG
     Route: 048
     Dates: start: 20060621, end: 20060711
  11. NOVODIGAL MITE [Concomitant]
     Route: 048
     Dates: start: 20060521, end: 20060711

REACTIONS (2)
  - HEPATITIS [None]
  - LIVER DISORDER [None]
